FAERS Safety Report 9587374 (Version 1)
Quarter: 2013Q4

REPORT INFORMATION
  Report Type: Spontaneous
  Country: US (occurrence: US)
  Receive Date: 20131003
  Receipt Date: 20131003
  Transmission Date: 20140711
  Serious: No
  Sender: FDA-Public Use
  Company Number: US-009507513-1310USA000478

PATIENT
  Sex: Female

DRUGS (4)
  1. CLARITIN-D-12 [Suspect]
     Indication: SNEEZING
     Dosage: UNK, UNKNOWN
     Route: 048
  2. CLARITIN-D-12 [Suspect]
     Indication: RHINORRHOEA
  3. CLARITIN-D-12 [Suspect]
     Indication: THROAT IRRITATION
  4. CLARITIN-D-12 [Suspect]
     Indication: NASOPHARYNGITIS

REACTIONS (1)
  - Drug ineffective [Unknown]
